FAERS Safety Report 21337470 (Version 2)
Quarter: 2023Q1

REPORT INFORMATION
  Report Type: Spontaneous
  Country: FR (occurrence: FR)
  Receive Date: 20220915
  Receipt Date: 20230131
  Transmission Date: 20230417
  Serious: Yes (Life-Threatening, Hospitalization)
  Sender: FDA-Public Use
  Company Number: None

PATIENT
  Age: 70 Year
  Sex: Female
  Weight: 100 kg

DRUGS (7)
  1. CEFAZOLIN [Suspect]
     Active Substance: CEFAZOLIN
     Indication: Antibiotic prophylaxis
     Dosage: 4 GRAM, 1 TOTAL
     Route: 042
     Dates: start: 20220720, end: 20220720
  2. BUPIVACAINE HYDROCHLORIDE [Concomitant]
     Active Substance: BUPIVACAINE HYDROCHLORIDE
     Indication: Spinal anaesthesia
     Dosage: 10 MILLIGRAM, 1 TOTAL
     Route: 008
     Dates: start: 20220720, end: 20220720
  3. CLONIDINE HYDROCHLORIDE [Concomitant]
     Active Substance: CLONIDINE HYDROCHLORIDE
     Indication: Spinal anaesthesia
     Dosage: 125 MILLIGRAM, 1 TOTAL
     Route: 008
     Dates: start: 20220720, end: 20220720
  4. ROPIVACAINE HYDROCHLORIDE [Concomitant]
     Active Substance: ROPIVACAINE HYDROCHLORIDE
     Indication: Spinal anaesthesia
     Dosage: 142.5 MILLIGRAM, 1 TOTAL
     Dates: start: 20220720, end: 20220720
  5. DROPERIDOL [Concomitant]
     Active Substance: DROPERIDOL
     Indication: Prophylaxis of nausea and vomiting
     Dosage: 0.6 MILLIGRAM, 1 TOTAL
     Route: 042
     Dates: start: 20220720, end: 20220720
  6. SUFENTANIL [Concomitant]
     Active Substance: SUFENTANIL
     Indication: Spinal anaesthesia
     Dosage: 5 MICROGRAM, 1 TOTAL
     Route: 042
     Dates: start: 20220720, end: 20220720
  7. DEXAMETHASONE [Concomitant]
     Active Substance: DEXAMETHASONE
     Indication: Prophylaxis of nausea and vomiting
     Dosage: 8 MILLIGRAM,1 TOTAL
     Route: 042
     Dates: start: 20220720, end: 20220720

REACTIONS (1)
  - Anaphylactic shock [Recovered/Resolved]

NARRATIVE: CASE EVENT DATE: 20220720
